FAERS Safety Report 4815603-X (Version None)
Quarter: 2005Q4

REPORT INFORMATION
  Report Type: 
  Country: None (occurrence: None)
  Receive Date: 20051027
  Receipt Date: 20051014
  Transmission Date: 20060501
  Serious: Yes (Other)
  Sender: FDA-Public Use
  Company Number: 2005141816

PATIENT
  Age: 37 Year
  Sex: Female

DRUGS (6)
  1. NICORETTE [Suspect]
     Indication: SMOKING CESSATION THERAPY
     Dosage: 15 MG DAILY, TRANSDERMAL
     Route: 062
     Dates: start: 20050101
  2. INSULIN [Concomitant]
  3. CARBAMAZEPINE [Concomitant]
  4. TOPIRAMATE [Concomitant]
  5. PROPRANOLOL [Concomitant]
  6. PAROXETINE HCL [Concomitant]

REACTIONS (2)
  - BLOOD GLUCOSE FLUCTUATION [None]
  - EPILEPSY [None]
